FAERS Safety Report 12857477 (Version 1)
Quarter: 2016Q4

REPORT INFORMATION
  Report Type: Spontaneous
  Country: DE (occurrence: DE)
  Receive Date: 20161018
  Receipt Date: 20161018
  Transmission Date: 20170207
  Serious: Yes (Other)
  Sender: FDA-Public Use
  Company Number: DE-AMGEN-DEUSP2016141057

PATIENT

DRUGS (1)
  1. XGEVA [Suspect]
     Active Substance: DENOSUMAB
     Indication: PRODUCT USED FOR UNKNOWN INDICATION
     Dosage: UNK
     Route: 065

REACTIONS (5)
  - Bronchial carcinoma [Unknown]
  - Cystitis haemorrhagic [Unknown]
  - Hepatic failure [Unknown]
  - Haematuria [Unknown]
  - Diverticular perforation [Unknown]
